FAERS Safety Report 6372160-7 (Version None)
Quarter: 2009Q3

REPORT INFORMATION
  Report Type: 
  Country: None (occurrence: None)
  Receive Date: 20090917
  Receipt Date: 20090904
  Transmission Date: 20100115
  Serious: Yes (Hospitalization)
  Sender: FDA-Public Use
  Company Number: ADR15782009

PATIENT
  Age: 20 Year
  Sex: Female

DRUGS (3)
  1. CITALOPRAM   (MFR: UNKNOWN) [Suspect]
  2. ALCOHOL [Concomitant]
  3. DIAZEPAM [Concomitant]

REACTIONS (8)
  - ABDOMINAL PAIN [None]
  - ALCOHOL USE [None]
  - GRAND MAL CONVULSION [None]
  - HYPOGLYCAEMIA [None]
  - INTENTIONAL OVERDOSE [None]
  - NAUSEA [None]
  - PYREXIA [None]
  - SINUS TACHYCARDIA [None]
